FAERS Safety Report 21217565 (Version 1)
Quarter: 2022Q3

REPORT INFORMATION
  Report Type: Report from Study
  Country: CA (occurrence: CA)
  Receive Date: 20220816
  Receipt Date: 20220816
  Transmission Date: 20221026
  Serious: Yes (Hospitalization, Other)
  Sender: FDA-Public Use
  Company Number: CA-SAMSUNG BIOEPIS-SB-2021-24515

PATIENT
  Age: 71 Year
  Sex: Male
  Weight: 70.5 kg

DRUGS (7)
  1. RENFLEXIS [Suspect]
     Active Substance: INFLIXIMAB-ABDA
     Indication: Crohn^s disease
     Route: 042
     Dates: start: 20210908, end: 20211116
  2. RENFLEXIS [Suspect]
     Active Substance: INFLIXIMAB-ABDA
     Route: 042
     Dates: start: 20211228
  3. RENFLEXIS [Suspect]
     Active Substance: INFLIXIMAB-ABDA
     Dosage: UNKNOWN
     Route: 065
  4. REMICADE [Suspect]
     Active Substance: INFLIXIMAB
     Indication: Product used for unknown indication
     Dosage: UNKNOWN
     Route: 065
  5. MORPHINE [Suspect]
     Active Substance: MORPHINE
     Indication: Pain
     Dosage: UNKNOWN
     Route: 065
  6. DILAUDID [Suspect]
     Active Substance: HYDROMORPHONE HYDROCHLORIDE
     Indication: Pain
     Dosage: UNKNOWN
     Route: 065
  7. CARVEDILOL [Concomitant]
     Active Substance: CARVEDILOL
     Indication: Product used for unknown indication
     Dosage: UNKNOWN
     Route: 065

REACTIONS (31)
  - Crohn^s disease [Not Recovered/Not Resolved]
  - Loss of consciousness [Recovered/Resolved]
  - Asthenia [Unknown]
  - Incorrect drug administration rate [Unknown]
  - Diabetes mellitus [Unknown]
  - Renal disorder [Unknown]
  - Fall [Unknown]
  - Fatigue [Unknown]
  - Dizziness [Unknown]
  - Depression [Unknown]
  - Joint stiffness [Unknown]
  - Weight decreased [Recovering/Resolving]
  - Loss of personal independence in daily activities [Unknown]
  - Hypoaesthesia [Unknown]
  - Dehydration [Unknown]
  - Platelet count decreased [Unknown]
  - Ill-defined disorder [Unknown]
  - Headache [Unknown]
  - Dyspnoea [Unknown]
  - Malaise [Not Recovered/Not Resolved]
  - Liver disorder [Unknown]
  - Swelling face [Not Recovered/Not Resolved]
  - Pain [Not Recovered/Not Resolved]
  - Fear [Unknown]
  - Illness [Not Recovered/Not Resolved]
  - Arthralgia [Not Recovered/Not Resolved]
  - Cardiac disorder [Unknown]
  - Nausea [Unknown]
  - Insomnia [Not Recovered/Not Resolved]
  - Drug ineffective [Unknown]
  - Product use issue [Unknown]

NARRATIVE: CASE EVENT DATE: 20210901
